FAERS Safety Report 12966542 (Version 4)
Quarter: 2020Q2

REPORT INFORMATION
  Report Type: Report from Study
  Country: DE (occurrence: DZ)
  Receive Date: 20161122
  Receipt Date: 20200430
  Transmission Date: 20200713
  Serious: Yes (Death)
  Sender: FDA-Public Use
  Company Number: DZ-ELI_LILLY_AND_COMPANY-DZ201611007484

PATIENT
  Age: 46 Year
  Sex: Female
  Weight: 53 kg

DRUGS (8)
  1. IRINOTECAN [Suspect]
     Active Substance: IRINOTECAN
     Dosage: 345 MG, EVERY 15 DAYS
     Route: 042
     Dates: start: 20161109, end: 20161111
  2. CETUXIMAB. [Suspect]
     Active Substance: CETUXIMAB
     Indication: COLORECTAL CANCER METASTATIC
     Dosage: 400 MG/M2, UNKNOWN
     Route: 042
     Dates: start: 20160613
  3. CETUXIMAB. [Suspect]
     Active Substance: CETUXIMAB
     Dosage: 250 MG/M2, UNKNOWN
     Route: 042
     Dates: end: 20161109
  4. FOLINIC ACID [Suspect]
     Active Substance: LEUCOVORIN
     Indication: COLORECTAL CANCER METASTATIC
     Dosage: 345 MG, EVERY 15 DAYS
     Route: 042
     Dates: start: 20160509, end: 20160511
  5. IRINOTECAN [Suspect]
     Active Substance: IRINOTECAN
     Indication: COLORECTAL CANCER METASTATIC
     Dosage: 345 MG, EVERY 15 DAYS
     Route: 042
     Dates: start: 20160509, end: 20160511
  6. FOLINIC ACID [Suspect]
     Active Substance: LEUCOVORIN
     Dosage: 345 MG, EVERY 15 DAYS
     Route: 042
     Dates: start: 20161109, end: 20161111
  7. 5-FU [FLUOROURACIL] [Suspect]
     Active Substance: FLUOROURACIL
     Dosage: 345 MG, EVERY 15 DAYS
     Route: 042
     Dates: start: 20161109, end: 20161111
  8. 5-FU [FLUOROURACIL] [Suspect]
     Active Substance: FLUOROURACIL
     Indication: COLORECTAL CANCER METASTATIC
     Dosage: 345 MG, EVERY 15 DAYS
     Route: 042
     Dates: start: 20160509, end: 20160511

REACTIONS (1)
  - Abdominal distension [Fatal]

NARRATIVE: CASE EVENT DATE: 20161114
